FAERS Safety Report 23735406 (Version 1)
Quarter: 2024Q2

REPORT INFORMATION
  Report Type: Report from Study
  Country: TW (occurrence: None)
  Receive Date: 20240412
  Receipt Date: 20240412
  Transmission Date: 20240716
  Serious: Yes (Death)
  Sender: FDA-Public Use
  Company Number: 2022A263332

PATIENT
  Age: 64 Year
  Sex: Male

DRUGS (1)
  1. IMFINZI [Suspect]
     Active Substance: DURVALUMAB
     Route: 042
     Dates: start: 20210603

REACTIONS (5)
  - Renal failure [Fatal]
  - Ascites [Fatal]
  - Urinary retention [Fatal]
  - Cough [Fatal]
  - Pleural effusion [Fatal]
